FAERS Safety Report 20189679 (Version 1)
Quarter: 2021Q4

REPORT INFORMATION
  Report Type: Spontaneous
  Country: ZA (occurrence: ZA)
  Receive Date: 20211215
  Receipt Date: 20211215
  Transmission Date: 20220303
  Serious: No
  Sender: FDA-Public Use
  Company Number: ZA-ORGANON-O2112ZAF000546

PATIENT
  Age: 17 Year
  Sex: Female

DRUGS (1)
  1. IMPLANON [Suspect]
     Active Substance: ETONOGESTREL
     Indication: Contraception
     Dosage: 1 IMPLANT
     Route: 059

REACTIONS (8)
  - Hyperhidrosis [Unknown]
  - Decreased appetite [Unknown]
  - Headache [Unknown]
  - Heavy menstrual bleeding [Unknown]
  - Libido decreased [Unknown]
  - Dizziness [Unknown]
  - Abdominal pain lower [Unknown]
  - Acne [Unknown]
